FAERS Safety Report 7534900-0 (Version None)
Quarter: 2011Q2

REPORT INFORMATION
  Report Type: 
  Country: None (occurrence: None)
  Receive Date: 20110609
  Receipt Date: 20081112
  Transmission Date: 20111010
  Serious: Yes (Death, Hospitalization)
  Sender: FDA-Public Use
  Company Number: PHHY2008JP10646

PATIENT

DRUGS (3)
  1. ZOMETA [Suspect]
     Indication: BREAST CANCER
     Dosage: 4 MG, QMO
     Dates: start: 20060626, end: 20061211
  2. XELODA [Concomitant]
     Dosage: 2400 MG, UNK
     Route: 048
     Dates: start: 20060703, end: 20061203
  3. TS 1 [Concomitant]

REACTIONS (2)
  - NEOPLASM MALIGNANT [None]
  - MALIGNANT PLEURAL EFFUSION [None]
